FAERS Safety Report 11312755 (Version 1)
Quarter: 2015Q3

REPORT INFORMATION
  Report Type: Spontaneous
  Country: US (occurrence: None)
  Receive Date: 20150724
  Receipt Date: 20150724
  Transmission Date: 20151125
  Serious: No
  Sender: FDA-Public Use
  Company Number: None

PATIENT
  Age: 50 Year
  Sex: Female
  Weight: 77.11 kg

DRUGS (6)
  1. QUETIAPINE [Suspect]
     Active Substance: QUETIAPINE
     Indication: SLEEP DISORDER
     Dosage: 1 TABLET, AT BEDTIME, TAKEN BY MOUTH
     Route: 048
     Dates: start: 20150410, end: 20150410
  2. NIFEDICAL XL [Concomitant]
     Active Substance: NIFEDIPINE
  3. TRAZODONE [Concomitant]
     Active Substance: TRAZODONE HYDROCHLORIDE
  4. BUPROPION. [Concomitant]
     Active Substance: BUPROPION
  5. LITHIUM CARBONATE. [Concomitant]
     Active Substance: LITHIUM CARBONATE
  6. HYDROHOLOROTHIAZIDE [Concomitant]

REACTIONS (2)
  - Cardiac disorder [None]
  - Product tampering [None]

NARRATIVE: CASE EVENT DATE: 20150410
